FAERS Safety Report 11322818 (Version 1)
Quarter: 2015Q3

REPORT INFORMATION
  Report Type: Report from Study
  Country: BR (occurrence: BR)
  Receive Date: 20150730
  Receipt Date: 20150730
  Transmission Date: 20151125
  Serious: Yes (Hospitalization)
  Sender: FDA-Public Use
  Company Number: PHHY2015BR087956

PATIENT
  Sex: Female
  Weight: 95 kg

DRUGS (2)
  1. ONBREZ [Suspect]
     Active Substance: INDACATEROL
     Indication: LUNG DISORDER
  2. ONBREZ [Suspect]
     Active Substance: INDACATEROL
     Indication: RESPIRATORY DISORDER
     Dosage: 1 DF, QD (IN THE MORNING) (START: 3-4 YEARS AGO)
     Route: 065

REACTIONS (3)
  - Femur fracture [Recovered/Resolved]
  - Fall [Recovered/Resolved]
  - Emphysema [Recovered/Resolved]
